FAERS Safety Report 16744346 (Version 1)
Quarter: 2019Q3

REPORT INFORMATION
  Report Type: Spontaneous
  Country: US (occurrence: US)
  Receive Date: 20190827
  Receipt Date: 20190827
  Transmission Date: 20191005
  Serious: Yes (Other)
  Sender: FDA-Public Use
  Company Number: US-TEVA-2019-US-1098637

PATIENT
  Age: 6 Year
  Sex: Male

DRUGS (5)
  1. PREDNISONE. [Suspect]
     Active Substance: PREDNISONE
     Indication: EOSINOPHILIC OESOPHAGITIS
     Dosage: EVERY OTHER DAY
     Route: 065
  2. BUDESONIDE. [Suspect]
     Active Substance: BUDESONIDE
     Indication: EOSINOPHILIC OESOPHAGITIS
     Dosage: SWALLOWED TOPICAL; RECEIVED FOR SEVERAL MONTHS
     Route: 061
  3. BUDESONIDE. [Suspect]
     Active Substance: BUDESONIDE
     Indication: EOSINOPHILIC OESOPHAGITIS
     Route: 055
  4. CICLESONIDE [Suspect]
     Active Substance: CICLESONIDE
     Indication: EOSINOPHILIC OESOPHAGITIS
     Dosage: SWALLOWED TOPICAL
     Route: 061
  5. FLUTICASONE PROPIONATE. [Suspect]
     Active Substance: FLUTICASONE PROPIONATE
     Indication: EOSINOPHILIC OESOPHAGITIS
     Dosage: SWALLOWED TOPICAL; RECEIVED FOR SEVERAL MONTHS
     Route: 061

REACTIONS (1)
  - Drug ineffective [Unknown]
